FAERS Safety Report 18960882 (Version 1)
Quarter: 2021Q1

REPORT INFORMATION
  Report Type: Spontaneous
  Country: IT (occurrence: IT)
  Receive Date: 20210303
  Receipt Date: 20210303
  Transmission Date: 20210420
  Serious: Yes (Other)
  Sender: FDA-Public Use
  Company Number: IT-AMGEN-ITASP2021030210

PATIENT
  Age: 72 Year
  Sex: Female
  Weight: 55 kg

DRUGS (2)
  1. VOTRIENT [Concomitant]
     Active Substance: PAZOPANIB HYDROCHLORIDE
     Indication: RENAL CANCER
     Dosage: 800 MILLIGRAM
     Route: 048
     Dates: start: 20180802, end: 20210208
  2. XGEVA [Suspect]
     Active Substance: DENOSUMAB
     Indication: BONE LOSS
     Dosage: 120 MILLIGRAM
     Route: 058
     Dates: start: 20180802, end: 20200710

REACTIONS (1)
  - Exposed bone in jaw [Recovering/Resolving]

NARRATIVE: CASE EVENT DATE: 20201201
